FAERS Safety Report 5754553-1 (Version None)
Quarter: 2008Q2

REPORT INFORMATION
  Report Type: 
  Country: None (occurrence: None)
  Receive Date: 20080530
  Receipt Date: 20080519
  Transmission Date: 20081010
  Serious: Yes (Other)
  Sender: FDA-Public Use
  Company Number: US-PFIZER INC-2008043120

PATIENT
  Sex: Male
  Weight: 104.3 kg

DRUGS (2)
  1. DILANTIN [Suspect]
     Indication: CONVULSION
  2. ALLEGRA [Concomitant]

REACTIONS (3)
  - ANTICONVULSANT DRUG LEVEL DECREASED [None]
  - CONVULSION [None]
  - PNEUMONIA [None]
